FAERS Safety Report 5360021-1 (Version None)
Quarter: 2007Q2

REPORT INFORMATION
  Report Type: 
  Country: None (occurrence: None)
  Receive Date: 20070618
  Receipt Date: 20070607
  Transmission Date: 20071010
  Serious: Yes (Hospitalization)
  Sender: FDA-Public Use
  Company Number: US-JNJFOC-20070602227

PATIENT
  Sex: Male
  Weight: 90.72 kg

DRUGS (7)
  1. DURAGESIC-100 [Suspect]
     Dosage: 100MCG + 100MCG
     Route: 062
  2. DURAGESIC-100 [Suspect]
     Indication: PAIN
     Dosage: 100MCG + 75MCG
     Route: 062
  3. FENTANYL TRANSDERMAL SYSTEM [Suspect]
     Indication: PAIN
     Dosage: 100MCG + 100MCG
     Route: 062
  4. NEURONTIN [Suspect]
     Indication: NEURALGIA
     Route: 048
  5. VALIUM [Concomitant]
     Indication: MUSCLE RELAXANT THERAPY
     Route: 048
  6. XANAX [Concomitant]
     Indication: ANXIETY
     Route: 048
  7. OXYCODONE HCL [Concomitant]
     Indication: PAIN
     Route: 048

REACTIONS (9)
  - APPLICATION SITE INFECTION [None]
  - BACK PAIN [None]
  - CATHETER SITE HAEMORRHAGE [None]
  - CATHETER SITE INFECTION [None]
  - DIPLEGIA [None]
  - INADEQUATE ANALGESIA [None]
  - NEURALGIA [None]
  - OPEN WOUND [None]
  - STOMACH DISCOMFORT [None]
